FAERS Safety Report 6305398-5 (Version None)
Quarter: 2009Q3

REPORT INFORMATION
  Report Type: 
  Country: None (occurrence: None)
  Receive Date: 20090811
  Receipt Date: 20090728
  Transmission Date: 20100115
  Serious: Yes (Other)
  Sender: FDA-Public Use
  Company Number: US-MYLANLABS-2009S1013317

PATIENT
  Age: 60 Year
  Sex: Male

DRUGS (3)
  1. NITROGLYCERIN [Suspect]
     Dosage: NITROGLYCERIN 0.4MG
     Route: 060
  2. ASPIRIN [Concomitant]
  3. LABETALOL HCL [Concomitant]

REACTIONS (2)
  - BALINT'S SYNDROME [None]
  - HYPOTENSION [None]
